FAERS Safety Report 7453707-6 (Version None)
Quarter: 2011Q2

REPORT INFORMATION
  Report Type: 
  Country: None (occurrence: None)
  Receive Date: 20110502
  Receipt Date: 20110111
  Transmission Date: 20111010
  Serious: No
  Sender: FDA-Public Use
  Company Number: US-ASTRAZENECA-2011SE01892

PATIENT
  Sex: Male
  Weight: 88.5 kg

DRUGS (2)
  1. MALOX [Concomitant]
  2. NEXIUM [Suspect]
     Indication: GASTRIC ULCER
     Route: 048

REACTIONS (2)
  - HEPATIC ENZYME INCREASED [None]
  - LIPASE INCREASED [None]
